FAERS Safety Report 10021964 (Version 1)
Quarter: 2014Q1

REPORT INFORMATION
  Report Type: Spontaneous
  Country: BR (occurrence: BR)
  Receive Date: 20140319
  Receipt Date: 20140319
  Transmission Date: 20141002
  Serious: Yes (Other)
  Sender: FDA-Public Use
  Company Number: BR-PFIZER INC-2014071519

PATIENT
  Age: 80 Year
  Sex: Male

DRUGS (2)
  1. XALATAN [Suspect]
     Dosage: 3 UG (1 DROP IN EACH EYE), 1X/DAY
     Route: 047
     Dates: start: 201308
  2. COMBIGAN [Concomitant]
     Dosage: UNK

REACTIONS (1)
  - Visual impairment [Recovering/Resolving]
